FAERS Safety Report 10637832 (Version 1)
Quarter: 2014Q4

REPORT INFORMATION
  Report Type: Spontaneous
  Country: AR (occurrence: AR)
  Receive Date: 20141208
  Receipt Date: 20141208
  Transmission Date: 20150529
  Serious: Yes (Congenital Anomaly)
  Sender: FDA-Public Use
  Company Number: AR-MYLANLABS-2014M1013020

PATIENT

DRUGS (7)
  1. AMLODIPINE [Concomitant]
     Active Substance: AMLODIPINE BESYLATE
     Route: 064
  2. ENALAPRIL [Concomitant]
     Active Substance: ENALAPRIL
     Route: 064
  3. TACROLIMUS. [Concomitant]
     Active Substance: TACROLIMUS
     Route: 064
  4. ERYTHROPOIETIN [Concomitant]
     Active Substance: ERYTHROPOIETIN
     Route: 064
  5. MYCOPHENOLATE MOFETIL. [Suspect]
     Active Substance: MYCOPHENOLATE MOFETIL
     Indication: RENAL TRANSPLANT
     Dosage: 1 G/D
     Route: 064
  6. DILTIAZEM [Concomitant]
     Active Substance: DILTIAZEM
     Route: 064
  7. MEPREDNISONE [Concomitant]
     Active Substance: MEPREDNISONE
     Route: 064

REACTIONS (5)
  - Congenital musculoskeletal anomaly [Unknown]
  - Oesophageal atresia [Unknown]
  - Anomaly of external ear congenital [Unknown]
  - Atrial septal defect [Unknown]
  - Foetal exposure during pregnancy [Unknown]
